FAERS Safety Report 5700686-5 (Version None)
Quarter: 2008Q2

REPORT INFORMATION
  Report Type: 
  Country: None (occurrence: None)
  Receive Date: 20080410
  Receipt Date: 20080312
  Transmission Date: 20081010
  Serious: Yes (Other)
  Sender: FDA-Public Use
  Company Number: JP-MERCK-0803USA02525

PATIENT
  Age: 49 Year
  Sex: Male

DRUGS (8)
  1. DECADRON [Suspect]
     Indication: MULTIPLE MYELOMA
     Route: 048
     Dates: start: 20050101, end: 20050101
  2. DECADRON [Suspect]
     Route: 048
     Dates: start: 20070101, end: 20070601
  3. DECADRON [Suspect]
     Indication: MASS
     Route: 048
     Dates: start: 20050101, end: 20050101
  4. DECADRON [Suspect]
     Route: 048
     Dates: start: 20070101, end: 20070601
  5. ONCOVIN [Suspect]
     Indication: MULTIPLE MYELOMA
     Route: 042
     Dates: start: 20060101
  6. DOXORUBICIN HYDROCHLORIDE [Suspect]
     Indication: MULTIPLE MYELOMA
     Route: 042
     Dates: start: 20050101, end: 20050101
  7. DOXORUBICIN HYDROCHLORIDE [Suspect]
     Route: 042
     Dates: start: 20060101
  8. VELCADE [Suspect]
     Indication: MASS
     Route: 065
     Dates: start: 20070101, end: 20070101

REACTIONS (2)
  - ABDOMINAL DISCOMFORT [None]
  - CEREBRAL INFARCTION [None]
